FAERS Safety Report 18525686 (Version 1)
Quarter: 2020Q4

REPORT INFORMATION
  Report Type: Spontaneous
  Country: US (occurrence: US)
  Receive Date: 20201120
  Receipt Date: 20201120
  Transmission Date: 20210114
  Serious: Yes (Disabling, Other)
  Sender: FDA-Public Use
  Company Number: US-GLAND PHARMA LIMITED-2020US007374

PATIENT
  Age: 4 Month
  Sex: Male

DRUGS (7)
  1. MELPHALAN HYDROCHLORIDE. [Suspect]
     Active Substance: MELPHALAN HYDROCHLORIDE
     Indication: VITREOUS DISORDER
     Dosage: 20 UG
  2. ETOPOSIDE. [Suspect]
     Active Substance: ETOPOSIDE
     Indication: CONGENITAL RETINOBLASTOMA
     Dosage: 5 CYCLES
     Route: 065
  3. MELPHALAN HYDROCHLORIDE. [Suspect]
     Active Substance: MELPHALAN HYDROCHLORIDE
     Dosage: 20 UG
  4. TOPOTECAN [Suspect]
     Active Substance: TOPOTECAN HYDROCHLORIDE
     Indication: CONGENITAL RETINOBLASTOMA
     Dosage: 0.3 MG (3 TREATMENTS IN THE RIGHT EYE AND 4 TREATMENTS IN THE LEFT EYE)
     Route: 013
  5. VINCRISTINE [Suspect]
     Active Substance: VINCRISTINE
     Indication: CONGENITAL RETINOBLASTOMA
     Dosage: 5 CYCLES
     Route: 065
  6. MELPHALAN HYDROCHLORIDE. [Suspect]
     Active Substance: MELPHALAN HYDROCHLORIDE
     Indication: CONGENITAL RETINOBLASTOMA
     Dosage: 3 MG (3 TREATMENTS IN THE RIGHT EYE AND 4 TREATMENTS IN THE LEFT EYE)
     Route: 013
  7. CARBOPLATIN. [Suspect]
     Active Substance: CARBOPLATIN
     Indication: CONGENITAL RETINOBLASTOMA
     Dosage: 30 MG (3 TREATMENTS IN THE RIGHT EYE AND 4 TREATMENTS IN THE LEFT EYE)
     Route: 013

REACTIONS (4)
  - Macular fibrosis [Recovered/Resolved with Sequelae]
  - Retinal degeneration [Recovered/Resolved with Sequelae]
  - Retinopathy proliferative [Recovered/Resolved with Sequelae]
  - Off label use [Unknown]
